FAERS Safety Report 11029753 (Version 1)
Quarter: 2015Q2

REPORT INFORMATION
  Report Type: Spontaneous
  Country: US (occurrence: US)
  Receive Date: 20150415
  Receipt Date: 20150415
  Transmission Date: 20150821
  Serious: Yes (Other)
  Sender: FDA-Public Use
  Company Number: US-AUROBINDO-AUR-APL-2015-03225

PATIENT
  Age: 60 Year
  Sex: Male

DRUGS (6)
  1. TENOFOVIR [Concomitant]
     Active Substance: TENOFOVIR
     Indication: ANTIRETROVIRAL THERAPY
     Dosage: UNK
     Route: 065
  2. ATAZANAVIR [Concomitant]
     Active Substance: ATAZANAVIR
     Indication: ANTIRETROVIRAL THERAPY
     Dosage: UNK
     Route: 065
  3. NORVIR [Interacting]
     Active Substance: RITONAVIR
     Indication: ANTIRETROVIRAL THERAPY
     Dosage: 100 MG, DAILY
     Route: 065
  4. TRIAMCINOLONE [Interacting]
     Active Substance: TRIAMCINOLONE
     Indication: BURSITIS
     Dosage: 20 MG, UNK (40MG TOTAL)
     Route: 065
  5. EMTRICITABINE [Concomitant]
     Active Substance: EMTRICITABINE
     Indication: ANTIRETROVIRAL THERAPY
     Dosage: UNK
     Route: 065
  6. LIDOCAINE INJECTION [Suspect]
     Active Substance: LIDOCAINE
     Indication: BURSITIS
     Dosage: UNK
     Route: 065

REACTIONS (13)
  - Local swelling [Recovered/Resolved]
  - Skin lesion [Recovered/Resolved]
  - Musculoskeletal pain [Recovered/Resolved]
  - Herpes virus infection [Unknown]
  - Blood pressure increased [Recovered/Resolved]
  - CD4 lymphocyte percentage decreased [Recovered/Resolved]
  - Natural killer T cell count decreased [Recovered/Resolved]
  - Fatigue [Recovered/Resolved]
  - Activities of daily living impaired [Recovered/Resolved]
  - Cushing^s syndrome [Recovered/Resolved]
  - Hypothalamic pituitary adrenal axis suppression [Recovered/Resolved]
  - Swelling face [Recovered/Resolved]
  - Drug interaction [Recovered/Resolved]
